FAERS Safety Report 17735646 (Version 6)
Quarter: 2020Q3

REPORT INFORMATION
  Report Type: Report from Study
  Country: US (occurrence: US)
  Receive Date: 20200501
  Receipt Date: 20200729
  Transmission Date: 20201102
  Serious: Yes (Other)
  Sender: FDA-Public Use
  Company Number: NVSC2020US117676

PATIENT
  Age: 60 Year
  Sex: Male

DRUGS (2)
  1. ENTRESTO [Suspect]
     Active Substance: SACUBITRIL\VALSARTAN
     Indication: CARDIAC FAILURE CONGESTIVE
  2. ENTRESTO [Suspect]
     Active Substance: SACUBITRIL\VALSARTAN
     Indication: CARDIAC FAILURE CONGESTIVE
     Dosage: 24 MG, BID
     Route: 048
     Dates: start: 202003

REACTIONS (12)
  - Nightmare [Unknown]
  - Vision blurred [Unknown]
  - Contusion [Unknown]
  - Emotional disorder [Unknown]
  - Balance disorder [Unknown]
  - Heart rate irregular [Not Recovered/Not Resolved]
  - Feeling abnormal [Unknown]
  - Extrasystoles [Unknown]
  - Fear [Unknown]
  - Supraventricular tachycardia [Not Recovered/Not Resolved]
  - Fatigue [Unknown]
  - Cough [Unknown]

NARRATIVE: CASE EVENT DATE: 202003
